FAERS Safety Report 19815945 (Version 5)
Quarter: 2022Q2

REPORT INFORMATION
  Report Type: Spontaneous
  Country: PY (occurrence: PY)
  Receive Date: 20210909
  Receipt Date: 20220608
  Transmission Date: 20220721
  Serious: Yes (Death, Other)
  Sender: FDA-Public Use
  Company Number: PY-TAKEDA-2021TUS028757

PATIENT
  Age: 74 Year
  Sex: Male

DRUGS (3)
  1. ICLUSIG [Suspect]
     Active Substance: PONATINIB
     Indication: Chronic myeloid leukaemia
     Dosage: 45 MILLIGRAM, QD
     Route: 065
  2. ICLUSIG [Suspect]
     Active Substance: PONATINIB
     Dosage: 30 MILLIGRAM, QD
     Route: 065
     Dates: start: 20210428
  3. ICLUSIG [Suspect]
     Active Substance: PONATINIB
     Dosage: 15 MILLIGRAM, QD
     Route: 065

REACTIONS (8)
  - Death [Fatal]
  - Diabetes mellitus inadequate control [Unknown]
  - Finger amputation [Unknown]
  - Thrombocytopenia [Unknown]
  - Blast cell crisis [Unknown]
  - Diabetic complication [Unknown]
  - Localised infection [Unknown]
  - Platelet count decreased [Unknown]

NARRATIVE: CASE EVENT DATE: 20210816
